FAERS Safety Report 25434907 (Version 4)
Quarter: 2025Q4

REPORT INFORMATION
  Report Type: Spontaneous
  Country: US (occurrence: US)
  Receive Date: 20250613
  Receipt Date: 20251003
  Transmission Date: 20260117
  Serious: Yes (Hospitalization, Other)
  Sender: BRISTOL-MYERS SQUIBB COMPANY
  Company Number: US-BRISTOL-MYERS SQUIBB COMPANY-2025-084218

PATIENT
  Age: 66 Year
  Sex: Female
  Weight: 77.11 kg

DRUGS (9)
  1. ELIQUIS [Suspect]
     Active Substance: APIXABAN
     Indication: Heart rate
     Dates: start: 20240914
  2. ELIQUIS [Suspect]
     Active Substance: APIXABAN
     Indication: Deep vein thrombosis
     Dates: start: 202411, end: 20241223
  3. ELIQUIS [Suspect]
     Active Substance: APIXABAN
     Dates: start: 20250129, end: 20250226
  4. BRAFTOVI [Suspect]
     Active Substance: ENCORAFENIB
     Indication: Product used for unknown indication
     Dates: start: 20250220
  5. BRAFTOVI [Suspect]
     Active Substance: ENCORAFENIB
  6. BRAFTOVI [Suspect]
     Active Substance: ENCORAFENIB
  7. MEKTOVI [Suspect]
     Active Substance: BINIMETINIB
     Indication: Product used for unknown indication
     Dates: start: 20250220
  8. AMLODIPINE [Concomitant]
     Active Substance: AMLODIPINE BESYLATE
     Indication: Hypertension
  9. ALBUTEROL [Concomitant]
     Active Substance: ALBUTEROL
     Indication: Product used for unknown indication
     Dosage: INHALER

REACTIONS (6)
  - Lung neoplasm malignant [Unknown]
  - Gangrene [Not Recovered/Not Resolved]
  - Peripheral artery thrombosis [Recovered/Resolved with Sequelae]
  - Thrombosis [Unknown]
  - Thrombocytopenia [Unknown]
  - Lung disorder [Unknown]

NARRATIVE: CASE EVENT DATE: 20250301
